FAERS Safety Report 5766801-2 (Version None)
Quarter: 2008Q2

REPORT INFORMATION
  Report Type: 
  Country: None (occurrence: None)
  Receive Date: 20080612
  Receipt Date: 20080604
  Transmission Date: 20081010
  Serious: Yes (Other)
  Sender: FDA-Public Use
  Company Number: PHMT2008CA00525

PATIENT
  Sex: Female

DRUGS (7)
  1. RASILEZ [Suspect]
     Indication: HYPERTENSION
     Dosage: UNK
     Dates: start: 20071219, end: 20071220
  2. LIPITOR [Concomitant]
  3. ADVAIR DISKUS 100/50 [Concomitant]
  4. ALBUTEROL [Concomitant]
  5. NORVASC [Concomitant]
  6. NITRODUR II [Concomitant]
  7. ENALAPRIL MALEATE [Concomitant]
     Dosage: 10 MG, BID

REACTIONS (6)
  - AGITATION [None]
  - ANAPHYLACTIC REACTION [None]
  - CONFUSIONAL STATE [None]
  - DYSPNOEA [None]
  - LIP OEDEMA [None]
  - PERIORBITAL OEDEMA [None]
